FAERS Safety Report 10408762 (Version 1)
Quarter: 2014Q3

REPORT INFORMATION
  Report Type: Spontaneous
  Country: US (occurrence: None)
  Receive Date: 20140825
  Receipt Date: 20140825
  Transmission Date: 20150326
  Serious: Yes (Other)
  Sender: FDA-Public Use
  Company Number: None

PATIENT
  Age: 72 Year
  Sex: Male

DRUGS (1)
  1. ABILIFY [Suspect]
     Active Substance: ARIPIPRAZOLE
     Indication: POST-TRAUMATIC STRESS DISORDER
     Dosage: ONE-HALF TAB (7.5 MG + 2.5 MG)  Q12H + Q6HR PRN ORAL
     Route: 048
     Dates: start: 20140610, end: 20140618

REACTIONS (1)
  - Movement disorder [None]

NARRATIVE: CASE EVENT DATE: 20140607
